FAERS Safety Report 12478809 (Version 1)
Quarter: 2016Q2

REPORT INFORMATION
  Report Type: Spontaneous
  Country: US (occurrence: US)
  Receive Date: 20160620
  Receipt Date: 20160620
  Transmission Date: 20160815
  Serious: No
  Sender: FDA-Public Use
  Company Number: US-TEVA-665483USA

PATIENT
  Age: 64 Year
  Sex: Male

DRUGS (9)
  1. CENTRUM [Concomitant]
     Active Substance: VITAMINS
  2. BACLOFEN. [Concomitant]
     Active Substance: BACLOFEN
  3. METOPROLOL. [Concomitant]
     Active Substance: METOPROLOL
  4. PRADAXA [Concomitant]
     Active Substance: DABIGATRAN ETEXILATE MESYLATE
  5. DIGOXIN. [Concomitant]
     Active Substance: DIGOXIN
  6. COPAXONE [Suspect]
     Active Substance: GLATIRAMER ACETATE
     Indication: MULTIPLE SCLEROSIS
     Route: 058
     Dates: start: 201605
  7. LISINOPRIL. [Concomitant]
     Active Substance: LISINOPRIL
  8. SPIRONOLACTONE. [Concomitant]
     Active Substance: SPIRONOLACTONE
  9. TIZANIDINE. [Concomitant]
     Active Substance: TIZANIDINE

REACTIONS (1)
  - Fall [Recovered/Resolved]

NARRATIVE: CASE EVENT DATE: 201605
